FAERS Safety Report 22144995 (Version 2)
Quarter: 2023Q2

REPORT INFORMATION
  Report Type: Spontaneous
  Country: AU (occurrence: AU)
  Receive Date: 20230328
  Receipt Date: 20230411
  Transmission Date: 20230722
  Serious: Yes (Hospitalization, Disabling, Other)
  Sender: FDA-Public Use
  Company Number: AU-BRISTOL-MYERS SQUIBB COMPANY-2023-041579

PATIENT
  Age: 76 Year
  Sex: Male
  Weight: 74 kg

DRUGS (3)
  1. AZACTAM [Suspect]
     Active Substance: AZTREONAM
     Indication: Pseudomonas infection
     Route: 042
     Dates: start: 20220124
  2. AZACTAM [Suspect]
     Active Substance: AZTREONAM
     Route: 042
     Dates: start: 20220623
  3. AVIBACTAM SODIUM\CEFTAZIDIME [Suspect]
     Active Substance: AVIBACTAM SODIUM\CEFTAZIDIME
     Indication: Pseudomonas infection
     Dosage: 2000/500 MG 8 HOURLY INJECTION/INFUSION
     Route: 042
     Dates: start: 20220623

REACTIONS (2)
  - Renal cell carcinoma [Not Recovered/Not Resolved]
  - Vascular access site infection [Not Recovered/Not Resolved]

NARRATIVE: CASE EVENT DATE: 20221215
